FAERS Safety Report 23800497 (Version 3)
Quarter: 2025Q2

REPORT INFORMATION
  Report Type: Spontaneous
  Country: US (occurrence: US)
  Receive Date: 20240430
  Receipt Date: 20250411
  Transmission Date: 20250717
  Serious: Yes (Death, Hospitalization, Other)
  Sender: IPSEN
  Company Number: US-IPSEN Group, Research and Development-2024-07307

PATIENT
  Age: 84 Year
  Sex: Female

DRUGS (5)
  1. ONIVYDE [Suspect]
     Active Substance: IRINOTECAN HYDROCHLORIDE
     Indication: Colorectal cancer
     Route: 042
     Dates: start: 20230308
  2. LEUCOVORIN [Suspect]
     Active Substance: LEUCOVORIN\LEUCOVORIN CALCIUM
     Indication: Colorectal cancer
     Dosage: 400 MILLIGRAM/SQ. METER
     Route: 042
     Dates: start: 20230308
  3. FLUOROURACIL [Suspect]
     Active Substance: FLUOROURACIL
     Indication: Colorectal cancer
     Dosage: 4464 MILLIGRAM
     Route: 042
     Dates: start: 20230308
  4. BEVACIZUMAB [Suspect]
     Active Substance: BEVACIZUMAB
     Indication: Colorectal cancer
     Dosage: 5 MILLIGRAM/KILOGRAM
     Route: 042
     Dates: start: 20220702
  5. SIREXATAMAB [Suspect]
     Active Substance: SIREXATAMAB
     Indication: Colorectal cancer
     Dosage: 400 MILLIGRAM
     Route: 042
     Dates: start: 20230308

REACTIONS (2)
  - Sepsis [Fatal]
  - Diarrhoea [Not Recovered/Not Resolved]

NARRATIVE: CASE EVENT DATE: 20230315
